FAERS Safety Report 4943906-7 (Version None)
Quarter: 2006Q1

REPORT INFORMATION
  Report Type: 
  Country: None (occurrence: None)
  Receive Date: 20060310
  Receipt Date: 20060228
  Transmission Date: 20060701
  Serious: Yes (Hospitalization, Other)
  Sender: FDA-Public Use
  Company Number: 2006030526

PATIENT
  Sex: Female

DRUGS (4)
  1. TIKOSYN [Suspect]
     Indication: ATRIAL FIBRILLATION
     Dosage: 1000 MCG (500 MCG, 2 IN 1 D), ORAL
     Route: 048
  2. PREDNISONE TAB [Concomitant]
  3. WARFARIN SODIUM [Concomitant]
  4. DILTIAZEM [Concomitant]

REACTIONS (2)
  - DYSPHAGIA [None]
  - VENTRICULAR FIBRILLATION [None]
